FAERS Safety Report 20674223 (Version 1)
Quarter: 2022Q2

REPORT INFORMATION
  Report Type: Spontaneous
  Country: CA (occurrence: CA)
  Receive Date: 20220405
  Receipt Date: 20220405
  Transmission Date: 20220720
  Serious: Yes (Other)
  Sender: FDA-Public Use
  Company Number: CA-TEVA-2022-CA-2024314

PATIENT
  Age: 70 Year
  Sex: Female

DRUGS (2)
  1. NAPROXEN [Suspect]
     Active Substance: NAPROXEN
     Route: 048
  2. MEFENAMIC ACID [Concomitant]
     Active Substance: MEFENAMIC ACID

REACTIONS (1)
  - Duodenal ulcer haemorrhage [Unknown]
